FAERS Safety Report 19222968 (Version 1)
Quarter: 2021Q2

REPORT INFORMATION
  Report Type: Spontaneous
  Country: US (occurrence: US)
  Receive Date: 20210506
  Receipt Date: 20210506
  Transmission Date: 20210717
  Serious: No
  Sender: FDA-Public Use
  Company Number: None

PATIENT

DRUGS (1)
  1. ETESEVIMAB 700 MG/20 ML [Suspect]
     Active Substance: ETESEVIMAB
     Indication: COVID-19

REACTIONS (4)
  - Product preparation error [None]
  - Product packaging confusion [None]
  - Product dispensing error [None]
  - Incorrect dose administered [None]

NARRATIVE: CASE EVENT DATE: 20210413
